FAERS Safety Report 24841290 (Version 1)
Quarter: 2025Q1

REPORT INFORMATION
  Report Type: Spontaneous
  Country: CA (occurrence: CA)
  Receive Date: 20250114
  Receipt Date: 20250114
  Transmission Date: 20250408
  Serious: Yes (Other)
  Sender: FRESENIUS KABI
  Company Number: CA-FreseniusKabi-FK202500218

PATIENT
  Age: 54 Year
  Sex: Male

DRUGS (3)
  1. HEPARIN SODIUM [Suspect]
     Active Substance: HEPARIN SODIUM
     Indication: Product used for unknown indication
     Route: 042
  2. ASPIRIN [Suspect]
     Active Substance: ASPIRIN
     Indication: Product used for unknown indication
     Dosage: FOA: NOT SPECIFIED?1 EVERY 1 DAYS
     Route: 048
  3. BRILINTA [Suspect]
     Active Substance: TICAGRELOR
     Indication: Product used for unknown indication
     Dosage: FOA: UNKNOWN?2 EVERY 1 DAYS
     Route: 048

REACTIONS (5)
  - Anaemia [Recovered/Resolved]
  - Haemolysis [Recovered/Resolved]
  - Haemorrhage [Recovered/Resolved]
  - Inflammation [Recovered/Resolved]
  - Thrombocytopenia [Recovered/Resolved]
